FAERS Safety Report 26197223 (Version 1)
Quarter: 2025Q4

REPORT INFORMATION
  Report Type: Spontaneous
  Country: US (occurrence: None)
  Receive Date: 20251224
  Receipt Date: 20251224
  Transmission Date: 20260118
  Serious: Yes (Hospitalization)
  Sender: FDA-CTU
  Company Number: None

PATIENT
  Age: 77 Year
  Sex: Female

DRUGS (11)
  1. POMALYST [Suspect]
     Active Substance: POMALIDOMIDE
     Indication: Plasma cell myeloma
     Dosage: FREQUENCY : DAILY;
     Route: 048
     Dates: start: 20210204
  2. ELIQUIS [Concomitant]
     Active Substance: APIXABAN
  3. DEXAMETHASONE [Concomitant]
     Active Substance: DEXAMETHASONE
  4. ALBUTEROL [Concomitant]
     Active Substance: ALBUTEROL
  5. Albuterol Neb Solution [Concomitant]
  6. DARZALEX [Concomitant]
     Active Substance: DARATUMUMAB
  7. LETROZOLE [Concomitant]
     Active Substance: LETROZOLE
  8. ZINC [Concomitant]
     Active Substance: ZINC
  9. VITAMIN D3 [Concomitant]
     Active Substance: CHOLECALCIFEROL
  10. VITAMIN B6 [Concomitant]
     Active Substance: PYRIDOXINE HYDROCHLORIDE
  11. VITAMIN C [Concomitant]
     Active Substance: ASCORBIC ACID

REACTIONS (1)
  - Respiratory syncytial virus infection [None]

NARRATIVE: CASE EVENT DATE: 20251218
